FAERS Safety Report 22155836 (Version 7)
Quarter: 2024Q1

REPORT INFORMATION
  Report Type: Spontaneous
  Country: US (occurrence: US)
  Receive Date: 20230330
  Receipt Date: 20240109
  Transmission Date: 20240410
  Serious: Yes (Hospitalization, Other)
  Sender: FDA-Public Use
  Company Number: US-PFIZER INC-202200534709

PATIENT
  Age: 77 Year
  Sex: Female

DRUGS (3)
  1. IBRANCE [Suspect]
     Active Substance: PALBOCICLIB
     Dosage: 125 MG
  2. IBRANCE [Suspect]
     Active Substance: PALBOCICLIB
     Dosage: 100 MG
  3. IBRANCE [Suspect]
     Active Substance: PALBOCICLIB
     Dosage: 100 MG, CYCLIC (TAKE 1 CAPSULE BY MOUTH ON DAYS 1-21. THEN OFF FOR 7 DAYS)
     Route: 048

REACTIONS (8)
  - Pneumonia [Unknown]
  - COVID-19 [Unknown]
  - Ear disorder [Unknown]
  - Cerebrovascular accident [Unknown]
  - Hypoacusis [Unknown]
  - Neoplasm progression [Unknown]
  - White blood cell count decreased [Unknown]
  - Product use issue [Unknown]
